FAERS Safety Report 24920097 (Version 1)
Quarter: 2025Q1

REPORT INFORMATION
  Report Type: Report from Study
  Country: US (occurrence: US)
  Receive Date: 20250204
  Receipt Date: 20250204
  Transmission Date: 20250408
  Serious: No
  Sender: EXELIXIS
  Company Number: US-EXELIXIS-CABO-24072804

PATIENT
  Sex: Male

DRUGS (6)
  1. CABOMETYX [Suspect]
     Active Substance: CABOZANTINIB S-MALATE
     Indication: Neuroendocrine tumour
     Dosage: 60 MG, QD
     Dates: start: 20231215
  2. CABOMETYX [Suspect]
     Active Substance: CABOZANTINIB S-MALATE
     Indication: Neuroendocrine tumour of the lung metastatic
  3. LOSARTAN POTASSIUM [Concomitant]
     Active Substance: LOSARTAN POTASSIUM
  4. METFORMIN HYDROCHLORIDE [Concomitant]
     Active Substance: METFORMIN HYDROCHLORIDE
  5. CRESTOR [Concomitant]
     Active Substance: ROSUVASTATIN CALCIUM
  6. GLIPIZIDE [Concomitant]
     Active Substance: GLIPIZIDE

REACTIONS (11)
  - Blood pressure increased [Recovering/Resolving]
  - Taste disorder [Recovering/Resolving]
  - Diarrhoea [Recovered/Resolved]
  - Dry skin [Unknown]
  - Stomatitis [Recovered/Resolved]
  - Fatigue [Recovered/Resolved]
  - Hypoaesthesia oral [Not Recovered/Not Resolved]
  - Nasopharyngitis [Unknown]
  - Dry mouth [Unknown]
  - Weight decreased [Recovered/Resolved]
  - Off label use [Unknown]
